FAERS Safety Report 16081246 (Version 1)
Quarter: 2019Q1

REPORT INFORMATION
  Report Type: Spontaneous
  Country: US (occurrence: US)
  Receive Date: 20190316
  Receipt Date: 20190316
  Transmission Date: 20190418
  Serious: No
  Sender: FDA-Public Use
  Company Number: US-TEVA-2019-US-1015463

PATIENT
  Sex: Female

DRUGS (1)
  1. HYDROCORTISONE WITH ALOE 1% (HYDROCORTISONE BUTYRATE) [Suspect]
     Active Substance: HYDROCORTISONE BUTYRATE
     Indication: PRURITUS
     Route: 065

REACTIONS (4)
  - Pruritus [Unknown]
  - Erythema [Unknown]
  - Drug ineffective [Unknown]
  - Swelling face [Unknown]
